FAERS Safety Report 4955759-1 (Version None)
Quarter: 2006Q1

REPORT INFORMATION
  Report Type: 
  Country: None (occurrence: None)
  Receive Date: 20060323
  Receipt Date: 20060314
  Transmission Date: 20060701
  Serious: Yes (Other)
  Sender: FDA-Public Use
  Company Number: HQWYE105702MAR06

PATIENT
  Age: 51 Year
  Sex: Male

DRUGS (7)
  1. CORDARONE [Suspect]
     Indication: ATRIAL FIBRILLATION
     Dosage: 200 MG 1X PER 1 DAY ORAL
     Route: 048
     Dates: start: 20041001, end: 20051010
  2. CORDARONE [Suspect]
     Indication: TACHYCARDIA
     Dosage: 200 MG 1X PER 1 DAY ORAL
     Route: 048
     Dates: start: 20041001, end: 20051010
  3. CONCOR (BISOPROLOL) [Concomitant]
  4. LISINOPRIL [Concomitant]
  5. DIGOXIN [Concomitant]
  6. ALDACTONE [Concomitant]
  7. MARCUMAR [Concomitant]

REACTIONS (3)
  - COLOUR BLINDNESS [None]
  - OPTIC NEUROPATHY [None]
  - VISUAL EVOKED POTENTIALS ABNORMAL [None]
